FAERS Safety Report 8990772 (Version 1)
Quarter: 2012Q4

REPORT INFORMATION
  Report Type: Spontaneous
  Country: US (occurrence: None)
  Receive Date: 20121226
  Receipt Date: 20121226
  Transmission Date: 20130627
  Serious: No
  Sender: FDA-Public Use
  Company Number: None

PATIENT
  Sex: Male
  Weight: 88.6 kg

DRUGS (1)
  1. XOLAIR 150MG GENENTECH [Suspect]
     Indication: ASTHMA
     Dosage: 225MG Q2W SQ
     Route: 058
     Dates: start: 20121129

REACTIONS (11)
  - Drug hypersensitivity [None]
  - Headache [None]
  - Hearing impaired [None]
  - Pruritus [None]
  - Burning sensation [None]
  - Dyspnoea [None]
  - Myalgia [None]
  - Tremor [None]
  - Chills [None]
  - Chest pain [None]
  - Cardiac enzymes increased [None]
